FAERS Safety Report 8512547-7 (Version None)
Quarter: 2012Q3

REPORT INFORMATION
  Report Type: 
  Country: None (occurrence: None)
  Receive Date: 20120716
  Receipt Date: 20120710
  Transmission Date: 20120928
  Serious: Yes (Other)
  Sender: FDA-Public Use
  Company Number: US-ROCHE-1035276

PATIENT
  Sex: Male
  Weight: 150.5 kg

DRUGS (1)
  1. ACCUTANE [Suspect]
     Indication: ACNE
     Route: 065

REACTIONS (8)
  - SUICIDAL IDEATION [None]
  - INFLAMMATORY BOWEL DISEASE [None]
  - DIVERTICULUM INTESTINAL [None]
  - COLITIS ULCERATIVE [None]
  - ANXIETY [None]
  - HAEMORRHOIDS [None]
  - COLONIC POLYP [None]
  - DEPRESSION [None]
